FAERS Safety Report 24758029 (Version 3)
Quarter: 2025Q4

REPORT INFORMATION
  Report Type: Spontaneous
  Country: US (occurrence: None)
  Receive Date: 20241220
  Receipt Date: 20251030
  Transmission Date: 20260118
  Serious: No
  Sender: UCB
  Company Number: US-UCBSA-2024047231

PATIENT
  Age: 62 Year
  Weight: 121.08 kg

DRUGS (1)
  1. BIMZELX [Suspect]
     Active Substance: BIMEKIZUMAB-BKZX
     Indication: Psoriasis
     Dosage: 320 MILLIGRAM, EV 4 WEEKS

REACTIONS (6)
  - Fungal infection [Unknown]
  - Candida infection [Unknown]
  - Tongue ulceration [Unknown]
  - Ear pain [Unknown]
  - Nasopharyngitis [Unknown]
  - Product availability issue [Unknown]
